FAERS Safety Report 6958301-9 (Version None)
Quarter: 2010Q3

REPORT INFORMATION
  Report Type: 
  Country: None (occurrence: None)
  Receive Date: 20100831
  Receipt Date: 20100826
  Transmission Date: 20110219
  Serious: Yes (Other)
  Sender: FDA-Public Use
  Company Number: A0877876A

PATIENT
  Age: 57 Year
  Sex: Male

DRUGS (3)
  1. ADVAIR DISKUS 100/50 [Suspect]
     Dosage: 1PUFF TWICE PER DAY
     Route: 055
     Dates: start: 20100823
  2. UNKNOWN BLOOD PRESSURE MEDICATION [Concomitant]
  3. LORAZEPAM [Concomitant]

REACTIONS (7)
  - DIZZINESS [None]
  - EUPHORIC MOOD [None]
  - FALL [None]
  - HAND FRACTURE [None]
  - HEAD INJURY [None]
  - LOSS OF CONSCIOUSNESS [None]
  - OEDEMA PERIPHERAL [None]
